FAERS Safety Report 12778615 (Version 1)
Quarter: 2016Q3

REPORT INFORMATION
  Report Type: Spontaneous
  Country: SE (occurrence: SE)
  Receive Date: 20160926
  Receipt Date: 20160926
  Transmission Date: 20161109
  Serious: Yes (Life-Threatening, Hospitalization)
  Sender: FDA-Public Use
  Company Number: SE-BIOVITRUM-2016SE0744

PATIENT
  Age: 24 Year
  Sex: Female

DRUGS (4)
  1. STEROIDS [Concomitant]
     Active Substance: UNSPECIFIED INGREDIENT
     Indication: STILL^S DISEASE ADULT ONSET
     Dosage: ^HIGH DOSE^
  2. CSA [Concomitant]
     Active Substance: CYCLOSPORINE
     Indication: STILL^S DISEASE ADULT ONSET
  3. KINERET [Suspect]
     Active Substance: ANAKINRA
     Indication: STILL^S DISEASE ADULT ONSET
  4. MTX [Concomitant]
     Active Substance: METHOTREXATE SODIUM
     Indication: STILL^S DISEASE ADULT ONSET

REACTIONS (2)
  - Sepsis [Not Recovered/Not Resolved]
  - Histiocytosis haematophagic [Not Recovered/Not Resolved]
